FAERS Safety Report 8336988-6 (Version None)
Quarter: 2012Q2

REPORT INFORMATION
  Report Type: 
  Country: None (occurrence: None)
  Receive Date: 20120504
  Receipt Date: 20120426
  Transmission Date: 20120825
  Serious: Yes (Hospitalization, Other)
  Sender: FDA-Public Use
  Company Number: JP-VERTEX PHARMACEUTICALS INC.-AE-2012-002822

PATIENT
  Age: 59 Year
  Sex: Male

DRUGS (9)
  1. PEG-INTRON [Concomitant]
     Indication: HEPATITIS C
     Route: 058
     Dates: start: 20120214, end: 20120217
  2. REBETOL [Concomitant]
     Indication: HEPATITIS C
     Route: 048
     Dates: start: 20120214, end: 20120217
  3. TELAVIC (TELAPREVIR) [Suspect]
     Indication: HEPATITIS C
     Route: 048
     Dates: start: 20120214, end: 20120217
  4. CLOBETASOL PROPIONATE [Concomitant]
     Route: 061
     Dates: start: 20120221
  5. ALLOPURINOL [Concomitant]
     Route: 048
  6. TELAVIC (TELAPREVIR) [Suspect]
     Route: 048
     Dates: start: 20120302
  7. PEG-INTRON [Concomitant]
     Route: 058
     Dates: start: 20120221
  8. REBETOL [Concomitant]
     Route: 048
     Dates: start: 20120221
  9. TELAVIC (TELAPREVIR) [Suspect]
     Route: 048
     Dates: start: 20120228, end: 20120301

REACTIONS (2)
  - RENAL FAILURE ACUTE [None]
  - HYPERURICAEMIA [None]
